FAERS Safety Report 21980663 (Version 1)
Quarter: 2023Q1

REPORT INFORMATION
  Report Type: Spontaneous
  Country: TR (occurrence: TR)
  Receive Date: 20230211
  Receipt Date: 20230211
  Transmission Date: 20230417
  Serious: Yes (Other)
  Sender: FDA-Public Use
  Company Number: TR-002147023-NVSC2023TR027232

PATIENT
  Age: 65 Year
  Sex: Male

DRUGS (2)
  1. TAFINLAR [Suspect]
     Active Substance: DABRAFENIB MESYLATE
     Indication: Malignant melanoma
     Dosage: UNK (START DATE: 2 MONTHS AGO)
     Route: 065
  2. MEKINIST [Suspect]
     Active Substance: TRAMETINIB DIMETHYL SULFOXIDE
     Indication: Malignant melanoma
     Dosage: UNK
     Route: 065

REACTIONS (15)
  - Gait inability [Unknown]
  - Cardiac disorder [Unknown]
  - Hypersensitivity [Unknown]
  - Nerve injury [Recovering/Resolving]
  - Malignant neoplasm progression [Unknown]
  - Malignant melanoma [Unknown]
  - Metastases to neck [Unknown]
  - Metastases to lung [Unknown]
  - Metastases to lymph nodes [Unknown]
  - Wound [Unknown]
  - Urinary incontinence [Unknown]
  - Anal incontinence [Unknown]
  - Condition aggravated [Unknown]
  - Insomnia [Unknown]
  - Mental disorder [Unknown]
